FAERS Safety Report 4524608-8 (Version None)
Quarter: 2005Q1

REPORT INFORMATION
  Report Type: 
  Country: None (occurrence: None)
  Receive Date: 20041117
  Receipt Date: 20040602
  Transmission Date: 20050727
  Serious: Yes (Hospitalization, Disabling)
  Sender: FDA-Public Use
  Company Number: NSADSS2003016148

PATIENT
  Age: 73 Year
  Sex: Male

DRUGS (13)
  1. LEVAQUIN [Suspect]
     Indication: UPPER RESPIRATORY TRACT INFECTION
     Dosage: 500 MG, ORAL
     Route: 048
     Dates: start: 20040223, end: 20040224
  2. OXYGEN (OXYGEN) [Concomitant]
  3. PREDNISONE [Concomitant]
  4. ATROVENT [Concomitant]
  5. DILTIAZEM [Concomitant]
  6. FLOVENT [Concomitant]
  7. FOSAMAX [Concomitant]
  8. GLUCOVANCE (GLIBOMET) [Concomitant]
  9. MAXZIDE [Concomitant]
  10. MULTIVITAMIN (MULTIVITAMINS) [Concomitant]
  11. OSCAL (CALCIUM CARBONATE) [Concomitant]
  12. SEREVENT [Concomitant]
  13. ALBUTEROL [Concomitant]

REACTIONS (1)
  - TENDON RUPTURE [None]
